FAERS Safety Report 8336240-9 (Version None)
Quarter: 2012Q2

REPORT INFORMATION
  Report Type: 
  Country: None (occurrence: None)
  Receive Date: 20120501
  Receipt Date: 20120418
  Transmission Date: 20120825
  Serious: Yes (Hospitalization)
  Sender: FDA-Public Use
  Company Number: DSA_56256_2012

PATIENT
  Age: 38 Year
  Sex: Female

DRUGS (3)
  1. ESCITALOPRAM [Concomitant]
  2. FLAGYL [Suspect]
     Indication: VULVOVAGINITIS TRICHOMONAL
     Dosage: (500 MG 1X VAGINAL)
     Route: 067
     Dates: start: 20101118, end: 20101118
  3. SECNIDAZOLE (SECNIDAZOLE) 2 G [Suspect]
     Indication: VULVOVAGINITIS TRICHOMONAL
     Dosage: (2 G 1X ORAL)
     Route: 048
     Dates: start: 20101118, end: 20101118

REACTIONS (1)
  - ANAPHYLACTIC REACTION [None]
